FAERS Safety Report 7273724-9 (Version None)
Quarter: 2011Q1

REPORT INFORMATION
  Report Type: 
  Country: None (occurrence: None)
  Receive Date: 20110203
  Receipt Date: 20110203
  Transmission Date: 20110831
  Serious: Yes (Hospitalization, Other)
  Sender: FDA-Public Use
  Company Number: GR-ABBOTT-11P-066-0701499-00

PATIENT
  Age: 54 Year
  Sex: Female
  Weight: 58 kg

DRUGS (8)
  1. COLCHICINE [Suspect]
     Indication: BEHCET'S SYNDROME
     Route: 048
     Dates: start: 20090901, end: 20091010
  2. KLARICID [Suspect]
     Indication: RESPIRATORY TRACT INFECTION
     Route: 048
     Dates: start: 20100927, end: 20101010
  3. MEDROL [Concomitant]
     Indication: BRONCHOSPASM
     Route: 048
     Dates: start: 20101001
  4. MEDROL [Concomitant]
     Route: 048
     Dates: end: 20101010
  5. LIVIAL [Concomitant]
     Indication: HYSTERECTOMY
     Route: 048
     Dates: start: 20091201, end: 20101012
  6. MEDROL [Concomitant]
     Route: 048
  7. TENORETIC [Concomitant]
     Indication: HYPERTENSION
     Route: 048
     Dates: start: 20070101, end: 20101012
  8. TENORMIN [Concomitant]
     Indication: HYPERTENSION
     Route: 048
     Dates: start: 20101013

REACTIONS (3)
  - MYOPATHY [None]
  - MUSCULAR WEAKNESS [None]
  - SKELETAL MUSCLE ENZYMES [None]
